FAERS Safety Report 19515373 (Version 2)
Quarter: 2021Q3

REPORT INFORMATION
  Report Type: Spontaneous
  Country: US (occurrence: US)
  Receive Date: 20210710
  Receipt Date: 20210803
  Transmission Date: 20211014
  Serious: Yes (Hospitalization)
  Sender: FDA-Public Use
  Company Number: NVSC2021US148531

PATIENT
  Sex: Male
  Weight: 104.31 kg

DRUGS (2)
  1. AFINITOR [Suspect]
     Active Substance: EVEROLIMUS
     Indication: RENAL CANCER
     Dosage: UNK
     Route: 065
     Dates: start: 20210527, end: 20210602
  2. LENVIMA [Suspect]
     Active Substance: LENVATINIB
     Indication: RENAL CANCER
     Dosage: 18 MG (FREQUENCY 1 TO 10 MG/2 TO 4 MG DAILY)
     Route: 048
     Dates: start: 20210527, end: 20210602

REACTIONS (8)
  - Arthralgia [Unknown]
  - Nausea [Unknown]
  - Hepatic neoplasm [Unknown]
  - Asthenia [Unknown]
  - Body temperature increased [Unknown]
  - Infection [Unknown]
  - Fatigue [Unknown]
  - Vomiting [Unknown]
